FAERS Safety Report 10046724 (Version 1)
Quarter: 2014Q1

REPORT INFORMATION
  Report Type: Spontaneous
  Country: US (occurrence: None)
  Receive Date: 20140328
  Receipt Date: 20140328
  Transmission Date: 20141002
  Serious: Yes (Life-Threatening, Other)
  Sender: FDA-Public Use
  Company Number: None

PATIENT
  Age: 44 Year
  Sex: Female

DRUGS (2)
  1. DULOXETINE [Suspect]
     Indication: DEPRESSION
     Route: 048
  2. DULOXETINE [Suspect]
     Indication: FIBROMYALGIA
     Route: 048

REACTIONS (8)
  - Palpitations [None]
  - Headache [None]
  - Chills [None]
  - Hyperhidrosis [None]
  - Vomiting [None]
  - Electrocardiogram change [None]
  - Hypertensive crisis [None]
  - Menstrual disorder [None]
